FAERS Safety Report 20720913 (Version 1)
Quarter: 2022Q2

REPORT INFORMATION
  Report Type: Spontaneous
  Country: US (occurrence: US)
  Receive Date: 20220418
  Receipt Date: 20220418
  Transmission Date: 20220721
  Serious: No
  Sender: FDA-Public Use
  Company Number: US-PFIZER INC-202100999743

PATIENT
  Age: 51 Year
  Sex: Female
  Weight: 116 kg

DRUGS (1)
  1. AROMASIN [Suspect]
     Active Substance: EXEMESTANE
     Indication: Aromatase inhibition therapy
     Dosage: 25 MG, 1X/DAY (ONCE A DAY NOT ALL THE TIME)

REACTIONS (2)
  - Nausea [Unknown]
  - Flushing [Unknown]
